FAERS Safety Report 20203160 (Version 3)
Quarter: 2022Q1

REPORT INFORMATION
  Report Type: Report from Study
  Country: CR (occurrence: CR)
  Receive Date: 20211218
  Receipt Date: 20220214
  Transmission Date: 20220423
  Serious: Yes (Other)
  Sender: FDA-Public Use
  Company Number: CR-NOVARTISPH-NVSC2021CR282713

PATIENT
  Age: 56 Year
  Sex: Female

DRUGS (2)
  1. SECUKINUMAB [Suspect]
     Active Substance: SECUKINUMAB
     Indication: Ankylosing spondylitis
     Dosage: 150 MG, UNKNOWN
     Route: 065
  2. SECUKINUMAB [Suspect]
     Active Substance: SECUKINUMAB
     Dosage: 150 MG, QMO (BENEATH THE SKIN USUALLY VIA INJECTION)
     Route: 058
     Dates: start: 20210817

REACTIONS (6)
  - Pneumonia [Recovering/Resolving]
  - Immunodeficiency [Unknown]
  - Ear infection [Recovering/Resolving]
  - Urinary tract infection [Recovering/Resolving]
  - COVID-19 [Unknown]
  - Infection [Recovered/Resolved]
